FAERS Safety Report 12177173 (Version 1)
Quarter: 2016Q1

REPORT INFORMATION
  Report Type: Report from Study
  Country: IN (occurrence: IN)
  Receive Date: 20160314
  Receipt Date: 20160314
  Transmission Date: 20160526
  Serious: Yes (Death, Other)
  Sender: FDA-Public Use
  Company Number: PHHY2016IN033311

PATIENT
  Sex: Female

DRUGS (1)
  1. EXELON PATCH [Suspect]
     Active Substance: RIVASTIGMINE
     Indication: DEMENTIA ALZHEIMER^S TYPE
     Dosage: 9.5 MG (10CM2 PATCH), QD
     Route: 062

REACTIONS (4)
  - Freezing phenomenon [Unknown]
  - Death [Fatal]
  - Abdominal discomfort [Unknown]
  - Respiratory failure [Unknown]
